FAERS Safety Report 20758459 (Version 6)
Quarter: 2022Q2

REPORT INFORMATION
  Report Type: Report from Study
  Country: AR (occurrence: AR)
  Receive Date: 20220427
  Receipt Date: 20220620
  Transmission Date: 20220721
  Serious: Yes (Hospitalization)
  Sender: FDA-Public Use
  Company Number: AR-NEKTAR THERAPEUTICS-2022214103467

PATIENT
  Age: 59 Year
  Sex: Male

DRUGS (1)
  1. BEMPEGALDESLEUKIN [Suspect]
     Active Substance: BEMPEGALDESLEUKIN
     Indication: Renal cell carcinoma
     Dosage: THE MOST RECENT DOSE WAS RECEIVED ON 06-APR-2022
     Route: 042
     Dates: start: 20200901

REACTIONS (1)
  - Pleural effusion [Recovered/Resolved]

NARRATIVE: CASE EVENT DATE: 20220418
